FAERS Safety Report 11931565 (Version 2)
Quarter: 2016Q2

REPORT INFORMATION
  Report Type: Report from Study
  Country: US (occurrence: US)
  Receive Date: 20160120
  Receipt Date: 20160519
  Transmission Date: 20160815
  Serious: Yes (Death, Hospitalization, Other)
  Sender: FDA-Public Use
  Company Number: US-BAYER-2015-400239

PATIENT
  Age: 42 Year
  Sex: Female

DRUGS (9)
  1. MORPHINE SULFATE. [Concomitant]
     Active Substance: MORPHINE SULFATE
     Indication: BONE PAIN
  2. STIVARGA [Suspect]
     Active Substance: REGORAFENIB
     Indication: COLORECTAL CANCER METASTATIC
     Dosage: 40 MG (4 TABLETS DAILY)
     Route: 048
  3. DEXAMETHASONE. [Concomitant]
     Active Substance: DEXAMETHASONE
  4. CODEINE W/PARACETAMOL [Concomitant]
     Active Substance: ACETAMINOPHEN\CODEINE PHOSPHATE
     Indication: BONE PAIN
  5. NORCO [Concomitant]
     Active Substance: ACETAMINOPHEN\HYDROCODONE BITARTRATE
  6. STIVARGA [Suspect]
     Active Substance: REGORAFENIB
     Indication: COLORECTAL CANCER METASTATIC
     Dosage: 40 MG (4 TABLETS DAILY)
     Route: 048
     Dates: start: 201508
  7. FENTANYL. [Concomitant]
     Active Substance: FENTANYL
     Indication: BONE PAIN
     Dosage: PATCH
  8. STIVARGA [Suspect]
     Active Substance: REGORAFENIB
     Indication: COLORECTAL CANCER METASTATIC
     Dosage: 120 MG, QD
     Route: 048
     Dates: start: 201509, end: 20151016
  9. BENADRYL ALLERGY [DIPHENHYDRAMINE CITRATE] [Concomitant]

REACTIONS (26)
  - Skin burning sensation [Not Recovered/Not Resolved]
  - Incision site pain [None]
  - Stomatitis [Unknown]
  - Asthenia [Recovering/Resolving]
  - Dyspnoea [None]
  - Abdominal pain upper [None]
  - Diarrhoea [Unknown]
  - Rash [Recovering/Resolving]
  - Headache [None]
  - Bone pain [Recovered/Resolved]
  - Dyspepsia [None]
  - Anxiety [Recovering/Resolving]
  - Skin exfoliation [None]
  - Chest pain [Recovered/Resolved]
  - Urinary tract infection [Not Recovered/Not Resolved]
  - Fatigue [Unknown]
  - Incision site pruritus [None]
  - Tumour pain [None]
  - Bone neoplasm [None]
  - Abdominal discomfort [Recovering/Resolving]
  - Intentional product use issue [None]
  - Death [Fatal]
  - Pain in extremity [None]
  - Dysphonia [None]
  - Nausea [Unknown]
  - Pain of skin [Not Recovered/Not Resolved]

NARRATIVE: CASE EVENT DATE: 201508
